FAERS Safety Report 4499358-7 (Version None)
Quarter: 2004Q3

REPORT INFORMATION
  Report Type: 
  Country: None (occurrence: None)
  Receive Date: 20040928
  Receipt Date: 20040805
  Transmission Date: 20050211
  Serious: No
  Sender: FDA-Public Use
  Company Number: 04P-163-0269444-00

PATIENT
  Age: 65 Year
  Sex: Female
  Weight: 72.5755 kg

DRUGS (8)
  1. HUMIRA [Suspect]
     Indication: RHEUMATOID ARTHRITIS
     Dosage: 40 MG, 1 IN 2 WK, SUBCUTANEOUS
     Route: 058
     Dates: start: 20040610
  2. METHOTREXATE SODIUM [Concomitant]
  3. PREDNISONE [Concomitant]
  4. ALPRAZOLAM [Concomitant]
  5. FOLIC ACID [Concomitant]
  6. ESOMEPRAZOLE [Concomitant]
  7. CYANOCOBALAMIN [Concomitant]
  8. CALCIUM GLUCONATE [Concomitant]

REACTIONS (10)
  - CHRONIC OBSTRUCTIVE AIRWAYS DISEASE EXACERBATED [None]
  - CONDITION AGGRAVATED [None]
  - HEADACHE [None]
  - HYPERHIDROSIS [None]
  - HYPERSENSITIVITY [None]
  - MUSCLE CRAMP [None]
  - NECK PAIN [None]
  - PARAESTHESIA [None]
  - TINNITUS [None]
  - VISION BLURRED [None]
